FAERS Safety Report 20702078 (Version 1)
Quarter: 2022Q2

REPORT INFORMATION
  Report Type: Spontaneous
  Country: US (occurrence: None)
  Receive Date: 20220411
  Receipt Date: 20220411
  Transmission Date: 20220721
  Serious: Yes (Other)
  Sender: FDA-Public Use
  Company Number: None

PATIENT
  Sex: Male

DRUGS (3)
  1. XCOPRI [Suspect]
     Active Substance: CENOBAMATE
     Indication: Partial seizures
  2. BRIVIACT [Concomitant]
     Active Substance: BRIVARACETAM
  3. CLOBAZAM [Concomitant]
     Active Substance: CLOBAZAM

REACTIONS (14)
  - Headache [None]
  - Asthenia [None]
  - Fatigue [None]
  - Myalgia [None]
  - Seasonal allergy [None]
  - Nasal discomfort [None]
  - Mouth breathing [None]
  - Ocular discomfort [None]
  - Dry eye [None]
  - Eye irritation [None]
  - Secretion discharge [None]
  - Eyelid disorder [None]
  - Acne [None]
  - Thirst [None]
